FAERS Safety Report 4717267-2 (Version None)
Quarter: 2005Q3

REPORT INFORMATION
  Report Type: 
  Country: None (occurrence: None)
  Receive Date: 20050715
  Receipt Date: 20050706
  Transmission Date: 20060218
  Serious: Yes (Hospitalization, Disabling)
  Sender: FDA-Public Use
  Company Number: 2005-07-0119

PATIENT
  Age: 84 Year
  Sex: Female
  Weight: 70 kg

DRUGS (3)
  1. CELESTENE (BETAMETHASONE SODIUM PHOSPHATE) INJECTABLE SOLUTION   ^LIKE [Suspect]
     Dosage: 8 MG INTRAMUSCULAR
     Route: 030
     Dates: start: 20041203, end: 20041203
  2. BETAMETHASONE DIPROPIONATE [Suspect]
     Dates: start: 20040801
  3. KENACORT [Suspect]
     Dates: start: 20041001

REACTIONS (2)
  - ILEAL PERFORATION [None]
  - PERITONITIS [None]
